FAERS Safety Report 16014224 (Version 2)
Quarter: 2019Q1

REPORT INFORMATION
  Report Type: Spontaneous
  Country: JP (occurrence: JP)
  Receive Date: 20190227
  Receipt Date: 20190312
  Transmission Date: 20190418
  Serious: Yes (Hospitalization)
  Sender: FDA-Public Use
  Company Number: JP-CELGENEUS-JPN-20190208913

PATIENT
  Age: 74 Year
  Sex: Male

DRUGS (2)
  1. TIGASON [Concomitant]
     Active Substance: ETRETINATE
     Indication: ERYTHRODERMIC PSORIASIS
     Route: 065
  2. OTEZLA [Suspect]
     Active Substance: APREMILAST
     Indication: ERYTHRODERMIC PSORIASIS
     Dosage: UNKNOWN
     Route: 048

REACTIONS (2)
  - Enterocolitis [Unknown]
  - Dehydration [Unknown]
